FAERS Safety Report 9181243 (Version 2)
Quarter: 2013Q2

REPORT INFORMATION
  Report Type: Spontaneous
  Country: US (occurrence: US)
  Receive Date: 20130322
  Receipt Date: 20130611
  Transmission Date: 20140414
  Serious: Yes (Other)
  Sender: FDA-Public Use
  Company Number: US-PFIZER INC-2013092938

PATIENT
  Age: 52 Year
  Sex: Female

DRUGS (4)
  1. CHANTIX [Suspect]
     Dosage: UNK
     Dates: start: 20081110, end: 20081203
  2. HYDROCODONE W/ACETAMINOPHEN [Concomitant]
     Indication: PAIN
     Dosage: 5-325 MG, 3X/DAY
     Route: 048
  3. CYMBALTA [Concomitant]
     Dosage: 60 MG, 1X/DAY
     Route: 048
  4. DEPLIN [Concomitant]
     Dosage: 7.5 MG, 1X/DAY
     Route: 048

REACTIONS (2)
  - Suicidal ideation [Unknown]
  - Loss of consciousness [Unknown]
